FAERS Safety Report 5114721-9 (Version None)
Quarter: 2006Q3

REPORT INFORMATION
  Report Type: 
  Country: None (occurrence: None)
  Receive Date: 20060926
  Receipt Date: 20060918
  Transmission Date: 20061208
  Serious: Yes (Other)
  Sender: FDA-Public Use
  Company Number: US-JNJFOC-20060904263

PATIENT
  Sex: Female
  Weight: 108.86 kg

DRUGS (6)
  1. DOXIL [Suspect]
     Indication: OVARIAN CANCER
     Route: 042
  2. CELEBREX [Concomitant]
     Indication: DRUG USE FOR UNKNOWN INDICATION
  3. LIPITOR [Concomitant]
     Indication: DRUG USE FOR UNKNOWN INDICATION
  4. FOSAMAX [Concomitant]
     Indication: DRUG USE FOR UNKNOWN INDICATION
  5. ZETIA [Concomitant]
     Indication: DRUG USE FOR UNKNOWN INDICATION
  6. MULTIPLE HERBAL MEDICATIONS [Concomitant]
     Indication: DRUG USE FOR UNKNOWN INDICATION

REACTIONS (2)
  - SKIN ULCER [None]
  - WOUND INFECTION STAPHYLOCOCCAL [None]
